FAERS Safety Report 21958767 (Version 6)
Quarter: 2024Q4

REPORT INFORMATION
  Report Type: Spontaneous
  Country: US (occurrence: US)
  Receive Date: 20230206
  Receipt Date: 20241220
  Transmission Date: 20250115
  Serious: No
  Sender: PFIZER
  Company Number: US-PFIZER INC-2020306156

PATIENT
  Age: 75 Year
  Sex: Female
  Weight: 97.52 kg

DRUGS (7)
  1. IBRANCE [Suspect]
     Active Substance: PALBOCICLIB
     Indication: Breast cancer metastatic
     Dosage: 125 MG, CYCLIC (ONCE A DAY FOR 21 DAYS AND 7 DAYS OFF)
     Route: 048
     Dates: start: 2020
  2. IBRANCE [Suspect]
     Active Substance: PALBOCICLIB
     Indication: Breast cancer female
  3. XGEVA [Concomitant]
     Active Substance: DENOSUMAB
     Indication: Metastases to bone
     Dosage: (120) EVERY 12 WEEK
     Route: 058
     Dates: start: 20241031
  4. XGEVA [Concomitant]
     Active Substance: DENOSUMAB
     Indication: Breast cancer female
  5. VITAMIN B12 [Concomitant]
     Active Substance: CYANOCOBALAMIN
     Indication: Breast cancer female
     Dosage: 1 V
     Route: 058
     Dates: start: 20241003, end: 20241003
  6. VITAMIN B12 [Concomitant]
     Active Substance: CYANOCOBALAMIN
     Dosage: 1 V
     Route: 058
     Dates: start: 20241031, end: 20241031
  7. VITAMIN B12 [Concomitant]
     Active Substance: CYANOCOBALAMIN
     Dosage: 1 V
     Route: 030
     Dates: start: 20241205

REACTIONS (5)
  - Dysphagia [Unknown]
  - Cough [Unknown]
  - Hypersensitivity [Unknown]
  - Brain fog [Not Recovered/Not Resolved]
  - Tooth extraction [Unknown]
